FAERS Safety Report 7406982-8 (Version None)
Quarter: 2011Q2

REPORT INFORMATION
  Report Type: 
  Country: None (occurrence: None)
  Receive Date: 20110411
  Receipt Date: 20110405
  Transmission Date: 20111010
  Serious: No
  Sender: FDA-Public Use
  Company Number: US-PFIZER INC-2011075544

PATIENT
  Sex: Female
  Weight: 54.4 kg

DRUGS (8)
  1. ETHOSUXIMIDE [Concomitant]
     Dosage: UNK
  2. SERTRALINE [Concomitant]
     Dosage: UNK
  3. TRAZODONE [Concomitant]
     Dosage: UNK
  4. CLONAZEPAM [Concomitant]
     Dosage: UNK
  5. NAPROXEN [Concomitant]
     Dosage: UNK
  6. VERAPAMIL [Concomitant]
     Dosage: UNK
  7. NEURONTIN [Suspect]
     Indication: FIBROMYALGIA
     Dosage: 200 MG, 1X/DAY
     Route: 048
     Dates: start: 20110324
  8. VICODIN [Concomitant]
     Dosage: UNK

REACTIONS (3)
  - EATING DISORDER [None]
  - APHTHOUS STOMATITIS [None]
  - ORAL PAIN [None]
